FAERS Safety Report 9376133 (Version 1)
Quarter: 2013Q2

REPORT INFORMATION
  Report Type: Spontaneous
  Country: DE (occurrence: DE)
  Receive Date: 20130629
  Receipt Date: 20130629
  Transmission Date: 20140414
  Serious: Yes (Other)
  Sender: FDA-Public Use
  Company Number: DE-MYLANLABS-2013S1013684

PATIENT
  Sex: Male

DRUGS (3)
  1. SERTRALINE [Suspect]
     Indication: MAJOR DEPRESSION
     Dosage: 25MG; THEN INCREASED TO 150 MG/DAY OVER 4 WEEKS
     Route: 064
  2. SERTRALINE [Suspect]
     Indication: MAJOR DEPRESSION
     Dosage: 150 MG/DAY
     Route: 064
  3. SERTRALINE [Suspect]
     Indication: MAJOR DEPRESSION
     Dosage: 150 MG/DAY
     Route: 063

REACTIONS (3)
  - Serotonin syndrome [Recovered/Resolved]
  - Foetal exposure during pregnancy [Recovered/Resolved]
  - Exposure during breast feeding [Recovered/Resolved]
